FAERS Safety Report 7417776-1 (Version None)
Quarter: 2011Q2

REPORT INFORMATION
  Report Type: 
  Country: None (occurrence: None)
  Receive Date: 20110415
  Receipt Date: 20110407
  Transmission Date: 20111010
  Serious: Yes (Other)
  Sender: FDA-Public Use
  Company Number: JP-PFIZER INC-2011038850

PATIENT
  Age: 75 Year
  Sex: Male

DRUGS (2)
  1. ZYVOX [Suspect]
     Indication: STAPHYLOCOCCAL BACTERAEMIA
     Dosage: 600 MG, 2X/DAY
     Route: 041
     Dates: start: 20090730, end: 20090814
  2. ZYVOX [Suspect]
     Dosage: 600 MG, 2X/DAY
     Route: 041
     Dates: start: 20090916, end: 20090930

REACTIONS (2)
  - PANCYTOPENIA [None]
  - DECREASED APPETITE [None]
